FAERS Safety Report 17258528 (Version 1)
Quarter: 2020Q1

REPORT INFORMATION
  Report Type: Spontaneous
  Country: GB (occurrence: GB)
  Receive Date: 20200110
  Receipt Date: 20200110
  Transmission Date: 20200409
  Serious: Yes (Other)
  Sender: FDA-Public Use
  Company Number: GB-NOVOPROD-689667

PATIENT
  Age: 10 Year
  Sex: Female
  Weight: 40 kg

DRUGS (3)
  1. NOVORAPID [Suspect]
     Active Substance: INSULIN ASPART
     Dosage: UNK
     Route: 058
  2. LEVEMIR [Concomitant]
     Active Substance: INSULIN DETEMIR
     Indication: PRODUCT USED FOR UNKNOWN INDICATION
     Dosage: UNK
     Route: 065
  3. NOVORAPID [Suspect]
     Active Substance: INSULIN ASPART
     Indication: PRODUCT USED FOR UNKNOWN INDICATION
     Dosage: 19 IU, QD
     Route: 058
     Dates: start: 20190930, end: 20191002

REACTIONS (5)
  - Blood glucose increased [Recovered/Resolved]
  - Blood ketone body increased [Recovered/Resolved]
  - Product quality issue [Unknown]
  - Product storage error [Unknown]
  - Drug ineffective [Unknown]
